FAERS Safety Report 4429801-0 (Version None)
Quarter: 2004Q3

REPORT INFORMATION
  Report Type: 
  Country: None (occurrence: None)
  Receive Date: 20040820
  Receipt Date: 20040810
  Transmission Date: 20050211
  Serious: Yes (Hospitalization)
  Sender: FDA-Public Use
  Company Number: NL-BRISTOL-MYERS SQUIBB COMPANY-12669727

PATIENT
  Age: 75 Year
  Sex: Female

DRUGS (9)
  1. COAPROVEL TABS 300MG/12.5MG [Suspect]
     Dosage: 150+12.5MG FROM 11-MAR-2004 TO 18-MAY-2004; DOSE INCREASED 18-MAY-2004; DISCONTINUED - DATE UNK
     Route: 048
     Dates: start: 20040311, end: 20040101
  2. PRIADEL [Interacting]
     Indication: BIPOLAR DISORDER
     Dosage: TABLET (CONTROLLED-RELEASE)
     Route: 048
  3. LITHIUM CARBONATE [Interacting]
     Indication: BIPOLAR DISORDER
     Dosage: START DATE { 2003, AT LEAST ONE YEAR; CAPSULE
     Route: 048
  4. CRESTOR [Concomitant]
     Indication: HYPERCHOLESTEROLAEMIA
     Dosage: DOSE REDUCED IN HALF ON 10-JUN-2004; LATER DISCONTINUED
     Route: 048
     Dates: start: 20040518, end: 20040601
  5. NITROGLYCERIN SPRAY [Concomitant]
     Dosage: ONE INHALED DOSE WHEN NECESSARY
     Route: 045
  6. TEMAZEPAM [Concomitant]
     Dosage: AT NIGHT
     Route: 048
  7. PROPRANOLOL HCL [Concomitant]
     Route: 048
  8. METAMUCIL-2 [Concomitant]
     Dates: start: 20040401
  9. CARDURA [Concomitant]
     Route: 048

REACTIONS (5)
  - CONFUSIONAL STATE [None]
  - DRUG INTERACTION [None]
  - DRUG LEVEL INCREASED [None]
  - HYPERCHOLESTEROLAEMIA [None]
  - THERAPEUTIC AGENT TOXICITY [None]
